FAERS Safety Report 6635262-3 (Version None)
Quarter: 2010Q1

REPORT INFORMATION
  Report Type: 
  Country: None (occurrence: None)
  Receive Date: 20100315
  Receipt Date: 20100304
  Transmission Date: 20100710
  Serious: No
  Sender: FDA-Public Use
  Company Number: US-B.I. PHARMACEUTICALS,INC./RIDGEFIELD-2010-BP-02687BP

PATIENT
  Sex: Male

DRUGS (3)
  1. SPIRIVA [Suspect]
     Indication: BRONCHITIS CHRONIC
     Dosage: 18 MCG
     Route: 055
     Dates: start: 20100218
  2. TOPROL-XL [Concomitant]
     Indication: HYPERTENSION
     Dosage: 40 MG
  3. QUINAPRIL [Concomitant]
     Indication: HYPERTENSION
     Dosage: 10 MG

REACTIONS (2)
  - DYSPHONIA [None]
  - ORAL CANDIDIASIS [None]
